FAERS Safety Report 6041957-5 (Version None)
Quarter: 2009Q1

REPORT INFORMATION
  Report Type: 
  Country: None (occurrence: None)
  Receive Date: 20090116
  Receipt Date: 20081204
  Transmission Date: 20090719
  Serious: No
  Sender: FDA-Public Use
  Company Number: US-PFIZER INC-2008075993

PATIENT
  Age: 17 Year
  Sex: Female

DRUGS (1)
  1. DEPO-PROVERA SUSPENSION/INJ [Suspect]
     Dosage: UNK

REACTIONS (1)
  - SMEAR CERVIX ABNORMAL [None]
